FAERS Safety Report 9526270 (Version 2)
Quarter: 2013Q3

REPORT INFORMATION
  Report Type: Spontaneous
  Country: GB (occurrence: GB)
  Receive Date: 20130916
  Receipt Date: 20130928
  Transmission Date: 20140515
  Serious: Yes (Disabling, Other)
  Sender: FDA-Public Use
  Company Number: GB-BAYER-2013-108171

PATIENT
  Age: 45 Year
  Sex: Female
  Weight: 70 kg

DRUGS (4)
  1. AVELOX [Suspect]
     Dosage: UNK
     Dates: start: 2013
  2. ESOMEPRAZOLE [Concomitant]
     Dosage: 20 MG, QD
  3. VITAMIN B [Concomitant]
     Dosage: 1 DF, QD
  4. VIBRAMYCIN D [Concomitant]
     Dosage: 200 MG, BID

REACTIONS (20)
  - Mental disorder [Not Recovered/Not Resolved]
  - Neuropathy peripheral [Not Recovered/Not Resolved]
  - Myopathy [Not Recovered/Not Resolved]
  - Anxiety [Not Recovered/Not Resolved]
  - Panic attack [Not Recovered/Not Resolved]
  - Crying [Not Recovered/Not Resolved]
  - Dyskinesia [None]
  - Tremor [None]
  - Night sweats [Not Recovered/Not Resolved]
  - Insomnia [Not Recovered/Not Resolved]
  - Palpitations [None]
  - Dyspnoea [None]
  - Hyperhidrosis [Not Recovered/Not Resolved]
  - Amnesia [Not Recovered/Not Resolved]
  - Asthenia [Not Recovered/Not Resolved]
  - Feeling hot [Not Recovered/Not Resolved]
  - Skin burning sensation [Not Recovered/Not Resolved]
  - Hypoaesthesia [Not Recovered/Not Resolved]
  - Restlessness [Not Recovered/Not Resolved]
  - Tendon pain [Not Recovered/Not Resolved]
